FAERS Safety Report 18781242 (Version 1)
Quarter: 2021Q1

REPORT INFORMATION
  Report Type: Spontaneous
  Country: US (occurrence: US)
  Receive Date: 20210124
  Receipt Date: 20210124
  Transmission Date: 20210419
  Serious: Yes (Other)
  Sender: FDA-Public Use
  Company Number: None

PATIENT
  Age: 41 Year
  Sex: Female
  Weight: 157.5 kg

DRUGS (30)
  1. IBUPROFEN. [Concomitant]
     Active Substance: IBUPROFEN
  2. MEDROXYPROGESTERONE [Concomitant]
     Active Substance: MEDROXYPROGESTERONE
  3. TENS UNIT [Concomitant]
  4. AZO [Concomitant]
     Active Substance: PHENAZOPYRIDINE HYDROCHLORIDE
  5. NAPROXEN SODIUM. [Suspect]
     Active Substance: NAPROXEN SODIUM
     Indication: ARTHRALGIA
     Dosage: ?          QUANTITY:180 CAPSULE(S);?
     Route: 048
     Dates: start: 20210113, end: 20210122
  6. BENTYL [Concomitant]
     Active Substance: DICYCLOMINE HYDROCHLORIDE
  7. ZOFRAN [Concomitant]
     Active Substance: ONDANSETRON HYDROCHLORIDE
  8. HYDROXYCHLOROQUINE [Concomitant]
     Active Substance: HYDROXYCHLOROQUINE
  9. IMODIUM [Concomitant]
     Active Substance: LOPERAMIDE HYDROCHLORIDE
  10. EYE DROPS [Concomitant]
     Active Substance: UNSPECIFIED INGREDIENT
  11. COLESTIPOL [Concomitant]
     Active Substance: COLESTIPOL
  12. PERCOCET [Concomitant]
     Active Substance: ACETAMINOPHEN\OXYCODONE HYDROCHLORIDE
  13. NAPROXEN SODIUM. [Suspect]
     Active Substance: NAPROXEN SODIUM
     Indication: ARTHRITIS
     Dosage: ?          QUANTITY:180 CAPSULE(S);?
     Route: 048
     Dates: start: 20210113, end: 20210122
  14. NAPROXEN SODIUM. [Suspect]
     Active Substance: NAPROXEN SODIUM
     Indication: INFUSION RELATED REACTION
     Dosage: ?          QUANTITY:180 CAPSULE(S);?
     Route: 048
     Dates: start: 20210113, end: 20210122
  15. PREDNISONE. [Concomitant]
     Active Substance: PREDNISONE
  16. LEVOTHYROXINE. [Concomitant]
     Active Substance: LEVOTHYROXINE
  17. MECLIZINE [Concomitant]
     Active Substance: MECLIZINE HYDROCHLORIDE
  18. PRILOSEC [Concomitant]
     Active Substance: OMEPRAZOLE MAGNESIUM
  19. OMEGA 3S [Concomitant]
  20. WELLBUTRIN XL [Concomitant]
     Active Substance: BUPROPION HYDROCHLORIDE
  21. IRON [Concomitant]
     Active Substance: IRON
  22. SALONPAS PATCH AND CREAMS [Concomitant]
  23. CLARITIN?D NOS [Concomitant]
     Active Substance: LORATADINE\PSEUDOEPHEDRINE SULFATE
  24. NAPROXEN SODIUM. [Suspect]
     Active Substance: NAPROXEN SODIUM
     Indication: MYALGIA
     Dosage: ?          QUANTITY:180 CAPSULE(S);?
     Route: 048
     Dates: start: 20210113, end: 20210122
  25. VITAMIN D3 [Concomitant]
     Active Substance: CHOLECALCIFEROL
  26. GABAPENTIN. [Concomitant]
     Active Substance: GABAPENTIN
  27. DOXEPIN [Concomitant]
     Active Substance: DOXEPIN
  28. VITAMIN B12 [Concomitant]
     Active Substance: CYANOCOBALAMIN
  29. MENTHOL AND LIDOCAINE [Concomitant]
  30. IRON SUPPLEMENT [Concomitant]
     Active Substance: IRON

REACTIONS (3)
  - Neuropathy peripheral [None]
  - Burning sensation [None]
  - Pain in extremity [None]

NARRATIVE: CASE EVENT DATE: 20210121
